FAERS Safety Report 6718729-9 (Version None)
Quarter: 2010Q2

REPORT INFORMATION
  Report Type: 
  Country: None (occurrence: None)
  Receive Date: 20100510
  Receipt Date: 20100505
  Transmission Date: 20101027
  Serious: Yes (Hospitalization, Other)
  Sender: FDA-Public Use
  Company Number: FR-BRISTOL-MYERS SQUIBB COMPANY-15093735

PATIENT
  Age: 78 Year
  Sex: Female

DRUGS (5)
  1. COAPROVEL FILM-COATED TABS 300/12.5 MG [Suspect]
     Dosage: DF=300MG/12.5 MG TABS
     Route: 048
     Dates: end: 20091230
  2. METFORMIN HCL [Suspect]
  3. BI-PROFENID [Suspect]
     Route: 048
     Dates: start: 20091215, end: 20091225
  4. LEVOTHYROX [Concomitant]
     Dosage: DF=TABS
  5. GAVISCON [Concomitant]
     Dosage: DF=SACHETS
     Route: 048

REACTIONS (7)
  - DIARRHOEA [None]
  - FALL [None]
  - FEMUR FRACTURE [None]
  - HYPERKALAEMIA [None]
  - LACTIC ACIDOSIS [None]
  - RENAL FAILURE ACUTE [None]
  - VOMITING [None]
